FAERS Safety Report 7358002-1 (Version None)
Quarter: 2011Q1

REPORT INFORMATION
  Report Type: 
  Country: None (occurrence: None)
  Receive Date: 20110307
  Receipt Date: 20100617
  Transmission Date: 20110831
  Serious: No
  Sender: FDA-Public Use
  Company Number: AEUSA201000227

PATIENT
  Age: 53 Year
  Sex: Female

DRUGS (1)
  1. PROLASTIN-C [Suspect]
     Indication: ALPHA-1 ANTI-TRYPSIN DEFICIENCY
     Dosage: 60 MG/KG;QW;IV
     Route: 042
     Dates: start: 20100616

REACTIONS (8)
  - RASH [None]
  - TACHYCARDIA [None]
  - HYPERTENSION [None]
  - NO REACTION ON PREVIOUS EXPOSURE TO DRUG [None]
  - PRESYNCOPE [None]
  - INFUSION RELATED REACTION [None]
  - TREMOR [None]
  - POOR VENOUS ACCESS [None]
